FAERS Safety Report 18178220 (Version 1)
Quarter: 2020Q3

REPORT INFORMATION
  Report Type: Spontaneous
  Country: FR (occurrence: FR)
  Receive Date: 20200821
  Receipt Date: 20200821
  Transmission Date: 20201103
  Serious: Yes (Hospitalization)
  Sender: FDA-Public Use
  Company Number: FR-AUROBINDO-AUR-APL-2020-040153

PATIENT
  Age: 83 Year
  Sex: Female

DRUGS (2)
  1. PYOSTACINE [Suspect]
     Active Substance: PRISTINAMYCIN
     Indication: ERYSIPELAS
     Dosage: UNK
     Route: 048
     Dates: start: 20200707, end: 20200710
  2. AMOXICILLIN. [Suspect]
     Active Substance: AMOXICILLIN
     Indication: ERYSIPELAS
     Dosage: UNK
     Route: 048
     Dates: start: 20200702, end: 20200707

REACTIONS (2)
  - Rash maculo-papular [Recovering/Resolving]
  - Condition aggravated [Recovering/Resolving]

NARRATIVE: CASE EVENT DATE: 202007
